FAERS Safety Report 12729953 (Version 2)
Quarter: 2016Q4

REPORT INFORMATION
  Report Type: Spontaneous
  Country: MD (occurrence: MD)
  Receive Date: 20160909
  Receipt Date: 20161025
  Transmission Date: 20170207
  Serious: Yes (Other)
  Sender: FDA-Public Use
  Company Number: MD-GE HEALTHCARE MEDICAL DIAGNOSTICS-OMPQ-PR-1609S-1653

PATIENT
  Age: 49 Year
  Sex: Male
  Weight: 77 kg

DRUGS (4)
  1. OMNIPAQUE [Suspect]
     Active Substance: IOHEXOL
     Indication: DIAGNOSTIC PROCEDURE
  2. OMNIPAQUE [Suspect]
     Active Substance: IOHEXOL
     Indication: RENAL CANCER
     Route: 042
     Dates: start: 20160608, end: 20160608
  3. SOLUTION NATRIUM CHLORIDE [Suspect]
     Active Substance: SODIUM CHLORIDE
     Indication: ADJUVANT THERAPY
     Route: 042
     Dates: start: 20160608, end: 20160608
  4. SOLUTION DEXAMETHASONE [Suspect]
     Active Substance: DEXAMETHASONE
     Indication: PROPHYLAXIS
     Route: 042
     Dates: start: 20160608, end: 20160608

REACTIONS (5)
  - Chills [Recovered/Resolved]
  - Hyperthermia [Recovered/Resolved]
  - Tremor [Recovered/Resolved]
  - Nausea [Recovered/Resolved]
  - Hyperaemia [Recovered/Resolved]

NARRATIVE: CASE EVENT DATE: 20160608
